FAERS Safety Report 7385732-8 (Version None)
Quarter: 2011Q1

REPORT INFORMATION
  Report Type: 
  Country: None (occurrence: None)
  Receive Date: 20110331
  Receipt Date: 20101013
  Transmission Date: 20110831
  Serious: Yes (Hospitalization, Other)
  Sender: FDA-Public Use
  Company Number: US-BAYER-201011578NA

PATIENT
  Sex: Female
  Weight: 56.689 kg

DRUGS (18)
  1. FOLIC ACID [Concomitant]
     Indication: SUPPLEMENTATION THERAPY
     Dosage: 1 MG, QD
     Dates: start: 20040101
  2. LEVSIN [Concomitant]
     Indication: ABDOMINAL PAIN
  3. DICYCLOMINE [Concomitant]
     Dosage: 20 MG, UNK
  4. CIPROFLOXACIN [Concomitant]
  5. OCELLA [Suspect]
     Dosage: UNK
     Dates: start: 20100201
  6. BENTYL [Concomitant]
     Indication: ABDOMINAL PAIN
     Dosage: UNK
     Dates: start: 20040101, end: 20060101
  7. LEVBID [Concomitant]
     Indication: ABDOMINAL PAIN
     Dosage: UNK
     Dates: start: 20060101
  8. DIFFERIN [Concomitant]
  9. ACIPHEX [Concomitant]
     Dosage: 20 MG, UNK
  10. YASMIN [Suspect]
     Indication: CONTRACEPTION
  11. DEPAKOTE ER [Concomitant]
     Indication: CONVULSION
     Dosage: 500 MG, BID
     Dates: start: 20040101
  12. ACCUTANE [Concomitant]
     Indication: ACNE
     Dosage: 40 MG, UNK
     Dates: start: 20050101
  13. ZITHROMAX [Concomitant]
     Dosage: UNK
     Dates: start: 20050101
  14. AKNE-MYCIN [ERYTHROMYCIN] [Concomitant]
  15. YASMIN [Suspect]
     Indication: MENSTRUATION IRREGULAR
     Dosage: UNK
     Dates: start: 20050101, end: 20100201
  16. BACTRIM [Concomitant]
     Dosage: UNK UNK, PRN
  17. AZITHROMYCIN [Concomitant]
     Dosage: UNK
     Dates: start: 20060101
  18. HYOSCYAMINE [Concomitant]
     Dosage: 0.125 MG, UNK

REACTIONS (6)
  - GALLBLADDER INJURY [None]
  - GALLBLADDER DISORDER [None]
  - BILIARY DYSKINESIA [None]
  - DYSPEPSIA [None]
  - CHOLELITHIASIS [None]
  - CHOLECYSTITIS CHRONIC [None]
